FAERS Safety Report 9209460 (Version 1)
Quarter: 2013Q2

REPORT INFORMATION
  Report Type: Report from Study
  Country: EG (occurrence: EG)
  Receive Date: 20130404
  Receipt Date: 20130404
  Transmission Date: 20140414
  Serious: Yes (Hospitalization)
  Sender: FDA-Public Use
  Company Number: EG-SANOFI-AVENTIS-2013SA034426

PATIENT
  Age: 10 Year
  Sex: Male

DRUGS (1)
  1. LANTUS [Suspect]
     Indication: TYPE 1 DIABETES MELLITUS
     Dosage: 18 IU/DAY TO 26 IU/DAY
     Route: 058
     Dates: start: 20120311

REACTIONS (1)
  - Nephrolithiasis [Recovering/Resolving]
